FAERS Safety Report 9959894 (Version 1)
Quarter: 2014Q1

REPORT INFORMATION
  Report Type: Report from Study
  Country: US (occurrence: US)
  Receive Date: 20140305
  Receipt Date: 20140305
  Transmission Date: 20141002
  Serious: No
  Sender: FDA-Public Use
  Company Number: US-ABBVIE-13P-163-1104889-00

PATIENT
  Age: 58 Year
  Sex: Female
  Weight: 59.47 kg

DRUGS (3)
  1. HUMIRA [Suspect]
     Indication: RHEUMATOID ARTHRITIS
     Route: 058
  2. METHOTREXATE [Concomitant]
     Indication: PRODUCT USED FOR UNKNOWN INDICATION
  3. TOPIRAMATE [Concomitant]
     Indication: PRODUCT USED FOR UNKNOWN INDICATION

REACTIONS (6)
  - Memory impairment [Unknown]
  - Hypoaesthesia [Recovered/Resolved]
  - Medication error [Recovered/Resolved]
  - Incorrect route of drug administration [Recovering/Resolving]
  - Wrong technique in drug usage process [Unknown]
  - Incorrect dose administered [Unknown]
